FAERS Safety Report 6382497-3 (Version None)
Quarter: 2009Q3

REPORT INFORMATION
  Report Type: 
  Country: None (occurrence: None)
  Receive Date: 20090930
  Receipt Date: 20090928
  Transmission Date: 20100115
  Serious: Yes (Hospitalization)
  Sender: FDA-Public Use
  Company Number: A0797042A

PATIENT
  Age: 77 Year
  Sex: Female
  Weight: 85 kg

DRUGS (8)
  1. ALLI [Suspect]
     Route: 048
     Dates: start: 20090407, end: 20090701
  2. LEVOTHYROXINE SODIUM [Concomitant]
     Route: 048
  3. CRESTOR [Concomitant]
     Route: 048
  4. ZETIA [Concomitant]
     Route: 048
  5. ASPIRIN [Concomitant]
     Route: 048
  6. TOPROL-XL [Concomitant]
     Route: 048
  7. PLAVIX [Concomitant]
     Route: 048
  8. FISH OIL [Concomitant]
     Route: 048

REACTIONS (6)
  - ABDOMINAL DISCOMFORT [None]
  - ABDOMINAL PAIN [None]
  - BLOOD POTASSIUM DECREASED [None]
  - DIARRHOEA [None]
  - DIVERTICULITIS [None]
  - TENDERNESS [None]
